FAERS Safety Report 16232703 (Version 3)
Quarter: 2019Q3

REPORT INFORMATION
  Report Type: Spontaneous
  Country: JP (occurrence: JP)
  Receive Date: 20190424
  Receipt Date: 20190709
  Transmission Date: 20191004
  Serious: Yes (Death, Hospitalization, Other)
  Sender: FDA-Public Use
  Company Number: JP-BRISTOL-MYERS SQUIBB COMPANY-BMS-2019-039940

PATIENT
  Age: 82 Year
  Sex: Female
  Weight: 50 kg

DRUGS (4)
  1. BAYASPIRIN [Suspect]
     Active Substance: ASPIRIN
     Indication: PAIN
     Dosage: 100 MILLIGRAM, QD
     Route: 048
     Dates: end: 20171225
  2. INLYTA [Suspect]
     Active Substance: AXITINIB
     Indication: METASTATIC RENAL CELL CARCINOMA
     Dosage: 10 MILLIGRAM, QD
     Route: 048
     Dates: start: 20171130, end: 20171214
  3. LOXOPROFEN [Suspect]
     Active Substance: LOXOPROFEN
     Indication: PAIN
     Dosage: 60 MILLIGRAM, PRN
     Route: 048
     Dates: end: 20171225
  4. OPDIVO [Suspect]
     Active Substance: NIVOLUMAB
     Indication: METASTATIC RENAL CELL CARCINOMA
     Dosage: 140 MILLIGRAM
     Route: 041
     Dates: start: 20170721, end: 20171019

REACTIONS (4)
  - Malaise [Not Recovered/Not Resolved]
  - Malignant neoplasm progression [Fatal]
  - Gastric ulcer haemorrhage [Recovering/Resolving]
  - Prescribed underdose [Unknown]

NARRATIVE: CASE EVENT DATE: 20171214
